FAERS Safety Report 24741209 (Version 1)
Quarter: 2024Q4

REPORT INFORMATION
  Report Type: Spontaneous
  Country: JP (occurrence: JP)
  Receive Date: 20241217
  Receipt Date: 20241217
  Transmission Date: 20250114
  Serious: Yes (Life-Threatening, Hospitalization, Other)
  Sender: RISING PHARMACEUTICALS
  Company Number: JP-RISINGPHARMA-JP-2024RISLIT00484

PATIENT
  Age: 20 Year
  Sex: Female

DRUGS (2)
  1. MEXILETINE HYDROCHLORIDE [Suspect]
     Active Substance: MEXILETINE HYDROCHLORIDE
     Indication: Product used for unknown indication
     Route: 048
  2. CAFFEINE [Suspect]
     Active Substance: CAFFEINE
     Indication: Product used for unknown indication
     Route: 048

REACTIONS (6)
  - Hypokalaemia [Unknown]
  - Lactic acidosis [Unknown]
  - Ventricular tachycardia [Unknown]
  - Circulatory collapse [Unknown]
  - Drug interaction [Unknown]
  - Overdose [Unknown]
